FAERS Safety Report 6122635-0 (Version None)
Quarter: 2009Q1

REPORT INFORMATION
  Report Type: 
  Country: None (occurrence: None)
  Receive Date: 20090318
  Receipt Date: 20090227
  Transmission Date: 20090719
  Serious: Yes (Other)
  Sender: FDA-Public Use
  Company Number: IT-BAYER-200915124GPV

PATIENT
  Age: 28 Year
  Sex: Male

DRUGS (2)
  1. ASPIRIN [Suspect]
     Indication: INFLUENZA
     Route: 065
     Dates: start: 20061201, end: 20061201
  2. MESALAMINE [Suspect]
     Indication: COLITIS ULCERATIVE

REACTIONS (8)
  - ARTHRALGIA [None]
  - CHEST PAIN [None]
  - DRUG HYPERSENSITIVITY [None]
  - DYSPNOEA EXERTIONAL [None]
  - INFECTION [None]
  - PLEURAL EFFUSION [None]
  - PLEURISY [None]
  - PYREXIA [None]
